FAERS Safety Report 7701852-X (Version None)
Quarter: 2011Q3

REPORT INFORMATION
  Report Type: 
  Country: None (occurrence: None)
  Receive Date: 20110822
  Receipt Date: 20110815
  Transmission Date: 20111222
  Serious: Yes (Hospitalization, Other)
  Sender: FDA-Public Use
  Company Number: US-TEVA-296042USA

PATIENT
  Sex: Female

DRUGS (6)
  1. CLOPIDOGREL [Concomitant]
     Indication: STENT PLACEMENT
  2. METHIMAZOLE [Concomitant]
     Indication: HYPOTHYROIDISM
     Route: 048
  3. NABUMETONE [Suspect]
     Indication: INFECTION
     Dosage: 1500 MILLIGRAM;
     Route: 048
     Dates: start: 20110526
  4. METHIMAZOLE [Concomitant]
     Indication: HYPERTHYROIDISM
  5. ACETYLSALICYLIC ACID [Concomitant]
  6. ALPRAZOLAM [Concomitant]

REACTIONS (10)
  - NAUSEA [None]
  - SPLEEN DISORDER [None]
  - PAIN [None]
  - SKIN EXFOLIATION [None]
  - ALOPECIA [None]
  - STEVENS-JOHNSON SYNDROME [None]
  - LOSS OF CONSCIOUSNESS [None]
  - FOREIGN BODY SENSATION IN EYES [None]
  - EYE IRRITATION [None]
  - DYSPNOEA [None]
